FAERS Safety Report 9940849 (Version 2)
Quarter: 2014Q1

REPORT INFORMATION
  Report Type: Spontaneous
  Country: US (occurrence: US)
  Receive Date: 20140303
  Receipt Date: 20140306
  Transmission Date: 20141002
  Serious: No
  Sender: FDA-Public Use
  Company Number: US-PFIZER INC-2014058557

PATIENT
  Age: 72 Year
  Sex: Female
  Weight: 56.69 kg

DRUGS (4)
  1. PREMARIN [Suspect]
     Indication: ATROPHIC VULVOVAGINITIS
     Dosage: 0.5 G, (THREE TO FOUR TIMES A WEEK)
     Route: 067
     Dates: start: 201307
  2. TRICOR [Concomitant]
     Indication: BLOOD CHOLESTEROL ABNORMAL
     Dosage: UNK
  3. EVISTA [Concomitant]
     Indication: BONE DISORDER
     Dosage: UNK
  4. ATARAX [Concomitant]
     Indication: HYPERSENSITIVITY
     Dosage: 25 MG, DAILY

REACTIONS (2)
  - Hypersensitivity [Unknown]
  - Product odour abnormal [Unknown]
